APPROVED DRUG PRODUCT: ILUVIEN
Active Ingredient: FLUOCINOLONE ACETONIDE
Strength: 0.19MG
Dosage Form/Route: IMPLANT;INTRAVITREAL
Application: N201923 | Product #001
Applicant: ALIMERA SCIENCES INC
Approved: Sep 26, 2014 | RLD: Yes | RS: Yes | Type: RX

PATENTS:
Patent 9849027 | Expires: Nov 7, 2028
Patent 9849027 | Expires: Nov 7, 2028
Patent 8871241 | Expires: Aug 12, 2027